FAERS Safety Report 21370400 (Version 1)
Quarter: 2022Q3

REPORT INFORMATION
  Report Type: Spontaneous
  Country: US (occurrence: None)
  Receive Date: 20220922
  Receipt Date: 20220922
  Transmission Date: 20221027
  Serious: No
  Sender: FDA-Public Use
  Company Number: None

PATIENT
  Sex: Female

DRUGS (2)
  1. SORAFENIB [Suspect]
     Active Substance: SORAFENIB
     Indication: Connective tissue neoplasm
     Dosage: 400MG ONCE DAILY ORAL?
     Route: 048
     Dates: start: 20220715
  2. NEXAVAR [Suspect]
     Active Substance: SORAFENIB
     Indication: Connective tissue neoplasm
     Dosage: 400MG DAILY ORAL?
     Route: 048
     Dates: start: 20211126

REACTIONS (1)
  - Drug ineffective [None]
